FAERS Safety Report 10531588 (Version 3)
Quarter: 2014Q4

REPORT INFORMATION
  Report Type: Report from Study
  Country: DE (occurrence: DE)
  Receive Date: 20141021
  Receipt Date: 20141104
  Transmission Date: 20150529
  Serious: Yes (Hospitalization)
  Sender: FDA-Public Use
  Company Number: DE-MERCK-1403DEU003181

PATIENT
  Age: 64 Year
  Sex: Female
  Weight: 60 kg

DRUGS (31)
  1. PEMBROLIZUMAB. [Suspect]
     Active Substance: PEMBROLIZUMAB
     Indication: MALIGNANT MELANOMA
     Dosage: UNK, Q3W
     Route: 042
     Dates: start: 20131030, end: 20140121
  2. CHOLECALCIFEROL [Concomitant]
     Active Substance: CHOLECALCIFEROL
     Indication: ROUTINE HEALTH MAINTENANCE
     Dosage: 2.6 IU, QW
     Route: 048
     Dates: start: 20131021
  3. CRANESBILL [Concomitant]
     Indication: ROUTINE HEALTH MAINTENANCE
     Dosage: 5 MG, BID
     Route: 048
     Dates: start: 20131121
  4. ANGELICA [Concomitant]
     Indication: ROUTINE HEALTH MAINTENANCE
     Dosage: 5 GTT, BID
     Route: 048
     Dates: start: 20131121
  5. TILIDIN [Concomitant]
     Active Substance: NALOXONE HYDROCHLORIDE\TILIDINE HYDROCHLORIDE
     Indication: GROIN PAIN
     Dosage: 50 MG, BID
     Route: 048
     Dates: start: 20131030
  6. L-THYROXIN [Concomitant]
     Active Substance: LEVOTHYROXINE SODIUM
     Indication: HYPOTHYROIDISM
     Dosage: 150 MICROGRAM, QD
     Route: 048
     Dates: start: 20140219, end: 20140702
  7. L-THYROXIN [Concomitant]
     Active Substance: LEVOTHYROXINE SODIUM
     Indication: HYPOTHYROIDISM
     Dosage: 125 MICROGRAM, QD
     Route: 048
     Dates: start: 201401, end: 20140218
  8. PEMBROLIZUMAB. [Suspect]
     Active Substance: PEMBROLIZUMAB
     Dosage: UNK, Q3W
     Route: 042
     Dates: start: 20140211, end: 20140211
  9. CORODIN [Concomitant]
     Indication: HYPOTENSION
     Dosage: DAILY DOSAGE: 5 DROPS, PRN
     Route: 048
     Dates: start: 20131121
  10. FENOFIBRATE. [Concomitant]
     Active Substance: FENOFIBRATE
     Indication: HYPERTRIGLYCERIDAEMIA
     Dosage: 200 MG, QD
     Route: 048
     Dates: start: 20130915, end: 201405
  11. TISSO PRO SIRTUSAN [Concomitant]
     Indication: ROUTINE HEALTH MAINTENANCE
     Dosage: UNK, QD
     Route: 048
     Dates: start: 20131121
  12. TISSO PRO DIALVIT [Concomitant]
     Indication: ROUTINE HEALTH MAINTENANCE
     Dosage: UNK, BID
     Dates: start: 20131121
  13. PEPPERMINT. [Concomitant]
     Active Substance: PEPPERMINT
     Indication: ROUTINE HEALTH MAINTENANCE
     Dosage: 5 GTT, BID
     Dates: start: 20131121
  14. DANDELION [Concomitant]
     Active Substance: TARAXACUM OFFICINALE POLLEN
     Indication: ROUTINE HEALTH MAINTENANCE
     Dosage: 5 GTT, BID
     Route: 048
     Dates: start: 20131121
  15. PERINDOPRIL [Concomitant]
     Active Substance: PERINDOPRIL
     Indication: HYPERTENSION
     Dosage: 5 MG, QD
     Route: 048
     Dates: start: 20030615
  16. MAGNESIUM (UNSPECIFIED) [Concomitant]
     Active Substance: MAGNESIUM
     Indication: ROUTINE HEALTH MAINTENANCE
     Dosage: UNK, QD
     Route: 048
     Dates: start: 20131121
  17. FLORA FLORADIX IRON PLUS HERBS LIQUID [Concomitant]
     Indication: ROUTINE HEALTH MAINTENANCE
     Dosage: 15 ML, TID
     Route: 048
     Dates: start: 20131121
  18. ASPIRIN. [Concomitant]
     Active Substance: ASPIRIN
     Indication: CEREBROVASCULAR ACCIDENT PROPHYLAXIS
     Dosage: DAILY DOSAGE: 81 MG, QOD
     Route: 048
     Dates: start: 20131108
  19. CITALOPRAM [Concomitant]
     Active Substance: CITALOPRAM HYDROBROMIDE
     Indication: PANIC DISORDER
  20. MIRTAZAPINE. [Concomitant]
     Active Substance: MIRTAZAPINE
     Indication: ANXIETY
     Dosage: 15 MG, QD
     Route: 048
     Dates: start: 201008
  21. TISSO PRO BASAN COMPLETE [Concomitant]
     Indication: ROUTINE HEALTH MAINTENANCE
     Dosage: 2 G, QD
     Route: 048
     Dates: start: 20131121
  22. TISSO PRO CURMIN COMPLETE II [Concomitant]
     Indication: ROUTINE HEALTH MAINTENANCE
     Dosage: UNK, QD
     Route: 048
     Dates: start: 20131121
  23. INDAPAMIDE. [Concomitant]
     Active Substance: INDAPAMIDE
     Indication: HYPERTENSION
     Dosage: DOSE: 1.25 MG, QD
     Route: 048
     Dates: start: 200308
  24. TISSO PRO EM SAN [Concomitant]
     Indication: ROUTINE HEALTH MAINTENANCE
     Dosage: 30 ML, QD
     Route: 048
     Dates: start: 20131121
  25. UBIDECARENONE [Concomitant]
     Active Substance: UBIDECARENONE
     Indication: ROUTINE HEALTH MAINTENANCE
     Dosage: UNK, QD
     Route: 048
     Dates: start: 20131121
  26. PEMBROLIZUMAB. [Suspect]
     Active Substance: PEMBROLIZUMAB
     Dosage: UNK, Q3W
     Route: 042
     Dates: start: 20140402, end: 20140825
  27. CITALOPRAM [Concomitant]
     Active Substance: CITALOPRAM HYDROBROMIDE
     Indication: ANXIETY
     Dosage: 20 MG, QD
     Route: 048
     Dates: start: 201008
  28. VERGENTAN [Concomitant]
     Indication: NAUSEA
     Dosage: 1 TABLET, BID
     Route: 048
     Dates: start: 201401
  29. ZINKOROTAT [Concomitant]
     Indication: ROUTINE HEALTH MAINTENANCE
     Dosage: UNK, QOD
     Route: 048
     Dates: start: 20131121
  30. SEA SALT [Concomitant]
     Indication: ROUTINE HEALTH MAINTENANCE
     Dosage: UNK, TID
     Route: 048
     Dates: start: 20131121
  31. BELOC-ZOK [Concomitant]
     Active Substance: METOPROLOL SUCCINATE
     Indication: HYPERTENSION
     Dosage: DOSE: 47.5 MG, QD
     Route: 048
     Dates: start: 20131215, end: 20140331

REACTIONS (1)
  - Pancreatitis [Recovered/Resolved]

NARRATIVE: CASE EVENT DATE: 20140304
